FAERS Safety Report 9584760 (Version 1)
Quarter: 2013Q4

REPORT INFORMATION
  Report Type: Spontaneous
  Country: US (occurrence: US)
  Receive Date: 20131002
  Receipt Date: 20131002
  Transmission Date: 20140711
  Serious: No
  Sender: FDA-Public Use
  Company Number: US-AMGEN-USASP2013054997

PATIENT
  Age: 39 Year
  Sex: Female

DRUGS (8)
  1. ENBREL [Suspect]
     Indication: PRODUCT USED FOR UNKNOWN INDICATION
     Dosage: 50 MG, 2 TIMES/WK
     Route: 058
  2. BENADRYL                           /00000402/ [Concomitant]
     Dosage: 25 MG, UNK
  3. HUMIRA [Concomitant]
     Dosage: 40 MG, UNK/0.8
  4. LEVOTHYROXIN [Concomitant]
     Dosage: 75 MUG, UNK
  5. LOSARTAN POTASICO [Concomitant]
     Dosage: 25 MG, UNK
  6. ZINC [Concomitant]
     Dosage: 30 MG, UNK
  7. MULTIVITAMINS, PLAIN [Concomitant]
     Dosage: UNK
  8. METHOTREXATE [Concomitant]
     Dosage: 20 MG, UNK

REACTIONS (1)
  - Drug effect decreased [Unknown]
